FAERS Safety Report 6578163-1 (Version None)
Quarter: 2010Q1

REPORT INFORMATION
  Report Type: 
  Country: None (occurrence: None)
  Receive Date: 20100211
  Receipt Date: 20100201
  Transmission Date: 20100710
  Serious: Yes (Hospitalization)
  Sender: FDA-Public Use
  Company Number: US-ABBOTT-10P-163-0624583-00

PATIENT
  Sex: Female
  Weight: 68.1 kg

DRUGS (4)
  1. AZMACORT [Suspect]
     Indication: OBLITERATIVE BRONCHIOLITIS
     Dates: start: 19950101, end: 20090101
  2. VENTOLIN [Concomitant]
     Indication: ASTHMA
  3. XIZOL [Concomitant]
     Indication: ASTHMA
  4. PREDNISONE [Concomitant]
     Indication: ASTHMA

REACTIONS (5)
  - ABDOMINAL PAIN UPPER [None]
  - COLON CANCER STAGE II [None]
  - DISEASE PROGRESSION [None]
  - DYSPNOEA [None]
  - WHEEZING [None]
